FAERS Safety Report 20920336 (Version 3)
Quarter: 2022Q3

REPORT INFORMATION
  Report Type: Spontaneous
  Country: CN (occurrence: None)
  Receive Date: 20220606
  Receipt Date: 20220825
  Transmission Date: 20221027
  Serious: Yes (Death, Hospitalization)
  Sender: FDA-Public Use
  Company Number: CN-ROCHE-3108832

PATIENT
  Age: 21 Year
  Sex: Male

DRUGS (1)
  1. GAZYVA [Suspect]
     Active Substance: OBINUTUZUMAB
     Indication: Nephrotic syndrome
     Route: 041
     Dates: start: 20220225, end: 20220316

REACTIONS (10)
  - Sepsis [Fatal]
  - Pneumonitis [Fatal]
  - Pulmonary haemorrhage [Fatal]
  - Multiple organ dysfunction syndrome [Fatal]
  - Disseminated intravascular coagulation [Fatal]
  - Pneumonia [Unknown]
  - Pyrexia [Unknown]
  - Cough [Unknown]
  - Tachypnoea [Unknown]
  - Off label use [Unknown]

NARRATIVE: CASE EVENT DATE: 20220225
